FAERS Safety Report 8442930 (Version 2)
Quarter: 2012Q4

REPORT INFORMATION
  Report Type: 
  Country: DK (occurrence: DK)
  Receive Date: 20120306
  Receipt Date: 20121029
  Transmission Date: 20130627
  Serious: Yes (Death, Hospitalization, Other)
  Sender: FDA-Public Use
  Company Number: DK-JNJFOC-20120213903

PATIENT
  Age: 70 Year
  Sex: Male

DRUGS (1)
  1. REMICADE [Suspect]
     Indication: RHEUMATOID ARTHRITIS
     Dosage: reported as weeks 0,2,4,6,and 8
     Route: 042
     Dates: start: 20090708

REACTIONS (2)
  - Lip and/or oral cavity cancer [Fatal]
  - Nasal sinus cancer [Fatal]
